FAERS Safety Report 5858759-2 (Version None)
Quarter: 2008Q3

REPORT INFORMATION
  Report Type: 
  Country: None (occurrence: None)
  Receive Date: 20080818
  Receipt Date: 20080523
  Transmission Date: 20090109
  Serious: No
  Sender: FDA-Public Use
  Company Number: WAES 0805USA05063

PATIENT
  Age: 81 Year
  Sex: Female

DRUGS (11)
  1. JANUVIA [Suspect]
     Indication: TYPE 2 DIABETES MELLITUS
     Dosage: 100 MG/DAILY/PO; 50 MG/DAILY/PO
     Route: 048
     Dates: start: 20080509
  2. JANUVIA [Suspect]
     Indication: TYPE 2 DIABETES MELLITUS
     Dosage: 100 MG/DAILY/PO; 50 MG/DAILY/PO
     Route: 048
     Dates: start: 20080509
  3. COUMADIN [Concomitant]
  4. DIOVAN [Concomitant]
  5. TRIGLIDE [Concomitant]
  6. ZOCOR [Concomitant]
  7. AMLODIPINE BESYLATE [Concomitant]
  8. CYANOCOBALAMIN [Concomitant]
  9. FUROSEMIDE [Concomitant]
  10. INSULIN [Concomitant]
  11. METOPROLOL [Concomitant]

REACTIONS (2)
  - BLOOD GLUCOSE INCREASED [None]
  - WRONG TECHNIQUE IN DRUG USAGE PROCESS [None]
